FAERS Safety Report 21601929 (Version 1)
Quarter: 2022Q4

REPORT INFORMATION
  Report Type: Spontaneous
  Country: US (occurrence: US)
  Receive Date: 20221116
  Receipt Date: 20221116
  Transmission Date: 20230113
  Serious: Yes (Hospitalization, Other)
  Sender: FDA-Public Use
  Company Number: US-SA-SAC20221115001201

PATIENT
  Sex: Female
  Weight: 97.5 kg

DRUGS (14)
  1. DUPIXENT [Suspect]
     Active Substance: DUPILUMAB
     Indication: Dermatitis atopic
     Dosage: 300 MG, QOW
     Route: 058
  2. OXYCODONE HYDROCHLORIDE [Concomitant]
     Active Substance: OXYCODONE HYDROCHLORIDE
  3. FLUCONAZOLE [Concomitant]
     Active Substance: FLUCONAZOLE
  4. NYSTATIN AND TRIAMCINOLONE [Concomitant]
     Active Substance: NYSTATIN\TRIAMCINOLONE ACETONIDE
  5. CYCLOBENZAPRINE HYDROCHLORIDE [Concomitant]
     Active Substance: CYCLOBENZAPRINE HYDROCHLORIDE
  6. ALBUTEROL SULFATE [Concomitant]
     Active Substance: ALBUTEROL SULFATE
  7. MELOXICAM [Concomitant]
     Active Substance: MELOXICAM
  8. ACETAMINOPHEN\HYDROCODONE [Concomitant]
     Active Substance: ACETAMINOPHEN\HYDROCODONE
  9. DIAZEPAM [Concomitant]
     Active Substance: DIAZEPAM
  10. EPINEPHRINE [Concomitant]
     Active Substance: EPINEPHRINE
  11. PREDNISONE [Concomitant]
     Active Substance: PREDNISONE
  12. PROMETHAZINE HYDROCHLORIDE [Concomitant]
     Active Substance: PROMETHAZINE HYDROCHLORIDE
  13. VERAPAMIL [Concomitant]
     Active Substance: VERAPAMIL HYDROCHLORIDE
  14. PANTOPRAZOLE SODIUM [PANTOPRAZOLE SODIUM MONOHYDRATE] [Concomitant]

REACTIONS (2)
  - Neoplasm malignant [Unknown]
  - Illness [Unknown]
